FAERS Safety Report 6071446-3 (Version None)
Quarter: 2009Q1

REPORT INFORMATION
  Report Type: 
  Country: None (occurrence: None)
  Receive Date: 20090205
  Receipt Date: 20090121
  Transmission Date: 20090719
  Serious: Yes (Hospitalization)
  Sender: FDA-Public Use
  Company Number: 2009000123

PATIENT
  Age: 71 Year
  Sex: Male
  Weight: 71.2 kg

DRUGS (15)
  1. ERLOTINIB (ERLOTINIB) (TABLET) (ERLOTINIB) [Suspect]
     Indication: NON-SMALL CELL LUNG CANCER
     Dosage: (150 MG, QD) ,ORAL
     Route: 048
     Dates: start: 20080730, end: 20081203
  2. ERLOTINIB (ERLOTINIB) (TABLET) (ERLOTINIB) [Suspect]
     Indication: NON-SMALL CELL LUNG CANCER
     Dosage: (150 MG, QD) ,ORAL
     Route: 048
     Dates: end: 20081223
  3. BEVACIZUMAB (INJECTION FOR INFUSION) [Suspect]
     Indication: NON-SMALL CELL LUNG CANCER
     Dosage: (15 MG/KG,Q21 DAYS) ,INTRAVENOUS
     Route: 042
     Dates: start: 20080730, end: 20081202
  4. ZOFRAN [Concomitant]
  5. FENTANYL-100 [Concomitant]
  6. MARINOL [Concomitant]
  7. CORTISONE (CORTISONE) [Concomitant]
  8. SYNTHROID [Concomitant]
  9. TRAZODONE HCL [Concomitant]
  10. ZOCOR [Concomitant]
  11. LORAZEPAM [Concomitant]
  12. PREVACID [Concomitant]
  13. M.V.I. [Concomitant]
  14. SENNA (SENNA) [Concomitant]
  15. DDAVP [Concomitant]

REACTIONS (6)
  - DEHYDRATION [None]
  - DIARRHOEA [None]
  - FAECAL INCONTINENCE [None]
  - LOSS OF CONSCIOUSNESS [None]
  - RENAL FAILURE ACUTE [None]
  - RHABDOMYOLYSIS [None]
